FAERS Safety Report 10050816 (Version 1)
Quarter: 2014Q2

REPORT INFORMATION
  Report Type: Spontaneous
  Country: US (occurrence: US)
  Receive Date: 20140401
  Receipt Date: 20140401
  Transmission Date: 20141212
  Serious: No
  Sender: FDA-Public Use
  Company Number: US-ASTRAZENECA-2013SE67255

PATIENT
  Age: 40 Year
  Sex: Female
  Weight: 68 kg

DRUGS (13)
  1. NEXIUM [Suspect]
     Indication: GASTRIC DISORDER
     Route: 048
  2. NEXIUM [Suspect]
     Indication: GASTROOESOPHAGEAL REFLUX DISEASE
     Route: 048
  3. SEROQUEL [Suspect]
     Indication: BIPOLAR DISORDER
     Route: 048
  4. SEROQUEL [Suspect]
     Indication: BIPOLAR DISORDER
     Route: 048
  5. ABILIFY [Concomitant]
     Indication: DEPRESSION
  6. ABILIFY [Concomitant]
     Indication: BIPOLAR DISORDER
  7. RIMERONE [Concomitant]
     Indication: SLEEP DISORDER
  8. TRAZADONE [Concomitant]
     Indication: SLEEP DISORDER
  9. VISTARIL [Concomitant]
     Indication: DEPRESSION
  10. VISTARIL [Concomitant]
     Indication: SLEEP DISORDER
  11. ELAVIL [Concomitant]
     Indication: MIGRAINE
  12. LORATIDINE [Concomitant]
     Indication: SINUS DISORDER
  13. RINADINE [Concomitant]
     Indication: GASTRIC DISORDER

REACTIONS (4)
  - Ulcer [Unknown]
  - Adverse event [Unknown]
  - Intentional product misuse [Unknown]
  - Drug dose omission [Unknown]
